FAERS Safety Report 5756102-0 (Version None)
Quarter: 2008Q2

REPORT INFORMATION
  Report Type: 
  Country: None (occurrence: None)
  Receive Date: 20080528
  Receipt Date: 20080512
  Transmission Date: 20081010
  Serious: Yes (Other)
  Sender: FDA-Public Use
  Company Number: 2008AL004617

PATIENT
  Sex: Female
  Weight: 86.1834 kg

DRUGS (5)
  1. DIGOXIN [Suspect]
     Indication: HEART RATE INCREASED
     Dosage: 0.25 MG, DAILY, PO
     Route: 048
     Dates: start: 20000101, end: 20080101
  2. LOPRESSOR [Concomitant]
  3. NEXIUM [Concomitant]
  4. LIPITOR [Concomitant]
  5. ZYRTEC [Concomitant]

REACTIONS (4)
  - DRUG EFFECT DECREASED [None]
  - HEART RATE INCREASED [None]
  - VOMITING [None]
  - WEIGHT DECREASED [None]
